FAERS Safety Report 9820163 (Version 2)
Quarter: 2014Q1

REPORT INFORMATION
  Report Type: Spontaneous
  Country: US (occurrence: None)
  Receive Date: 20131223
  Receipt Date: 20140228
  Transmission Date: 20141002
  Serious: Yes (Other)
  Sender: FDA-Public Use
  Company Number: 220809

PATIENT
  Age: 54 Year
  Sex: Female

DRUGS (1)
  1. PICATO [Suspect]
     Indication: SKIN DISORDER
     Route: 061
     Dates: start: 20130303, end: 20130303

REACTIONS (7)
  - Application site pain [None]
  - Periorbital oedema [None]
  - Visual impairment [None]
  - Application site erythema [None]
  - Incorrect dose administered [None]
  - Application site pain [None]
  - Incorrect drug administration duration [None]
